FAERS Safety Report 5965056-3 (Version None)
Quarter: 2008Q4

REPORT INFORMATION
  Report Type: 
  Country: None (occurrence: None)
  Receive Date: 20081124
  Receipt Date: 20081124
  Transmission Date: 20090506
  Serious: Yes (Life-Threatening, Other)
  Sender: FDA-Public Use
  Company Number: None

PATIENT
  Age: 47 Year
  Weight: 99.7913 kg

DRUGS (1)
  1. AVELOX [Suspect]
     Indication: SINUSITIS BACTERIAL
     Dosage: 400MG 1/DAY PO
     Route: 048
     Dates: start: 20081112, end: 20081121

REACTIONS (3)
  - ANAPHYLACTIC REACTION [None]
  - INSOMNIA [None]
  - PSYCHOMOTOR HYPERACTIVITY [None]
